FAERS Safety Report 12244821 (Version 2)
Quarter: 2016Q2

REPORT INFORMATION
  Report Type: Spontaneous
  Country: GR (occurrence: GR)
  Receive Date: 20160407
  Receipt Date: 20160414
  Transmission Date: 20160815
  Serious: Yes (Death, Other)
  Sender: FDA-Public Use
  Company Number: GR-BAXTER-2016BAX017951

PATIENT
  Age: 65 Year
  Sex: Female

DRUGS (11)
  1. FLUCONAZOLE REDIBAG/BAXTER 200MG/100ML SOLUTION FOR INFUSION [Suspect]
     Active Substance: FLUCONAZOLE
     Indication: ANTIBIOTIC THERAPY
     Dosage: 1X2
     Route: 042
  2. HUMAN ALBUMIN [Suspect]
     Active Substance: ALBUMIN HUMAN
     Indication: PRODUCT USED FOR UNKNOWN INDICATION
     Route: 042
     Dates: start: 201512
  3. LASIX [Suspect]
     Active Substance: FUROSEMIDE
     Indication: DIURETIC THERAPY
     Route: 042
     Dates: start: 201512
  4. FLAGYL [Suspect]
     Active Substance: METRONIDAZOLE\METRONIDAZOLE HYDROCHLORIDE
     Indication: ANTIBIOTIC THERAPY
     Dosage: 1X3
     Route: 042
  5. APOTEL [Suspect]
     Active Substance: ACETAMINOPHEN
     Indication: ANALGESIC THERAPY
     Route: 065
     Dates: start: 201512
  6. MORPHINE [Suspect]
     Active Substance: MORPHINE
     Indication: ANALGESIC THERAPY
     Route: 065
     Dates: start: 201512
  7. DYNASTAT [Suspect]
     Active Substance: PARECOXIB SODIUM
     Indication: ANALGESIC THERAPY
     Route: 065
     Dates: start: 201512
  8. LORDIN [Suspect]
     Active Substance: OMEPRAZOLE
     Indication: PALLIATIVE CARE
     Dosage: 1X1
     Route: 042
     Dates: start: 201512
  9. NUTRIFLEX LIPID PLUS [Suspect]
     Active Substance: AMINO ACIDS\DEXTROSE\ELECTROLYTES NOS\SOYBEAN OIL
     Indication: PARENTERAL NUTRITION
     Dosage: 1X1
     Route: 042
     Dates: start: 201512
  10. ADEPT [Suspect]
     Active Substance: ICODEXTRIN
     Indication: PRODUCT USED FOR UNKNOWN INDICATION
     Dosage: SPAN PORT, ONE UNIT
     Route: 065
     Dates: start: 20151211
  11. PRIMAXIN IV [Suspect]
     Active Substance: CILASTATIN SODIUM\IMIPENEM
     Indication: ANTIBIOTIC THERAPY
     Dosage: 1X4
     Route: 042
     Dates: start: 201512

REACTIONS (4)
  - Intestinal perforation [Unknown]
  - Abdominal adhesions [Unknown]
  - Death [Fatal]
  - Granuloma [Unknown]

NARRATIVE: CASE EVENT DATE: 201512
